FAERS Safety Report 19404088 (Version 1)
Quarter: 2021Q2

REPORT INFORMATION
  Report Type: Report from Study
  Country: US (occurrence: US)
  Receive Date: 20210610
  Receipt Date: 20210610
  Transmission Date: 20210717
  Serious: No
  Sender: FDA-Public Use
  Company Number: US-ACADIA PHARMACEUTICALS INC.-ACA-2021-PIM-001874

PATIENT
  Sex: Male

DRUGS (14)
  1. PAROXETINE. [Concomitant]
     Active Substance: PAROXETINE
  2. NUPLAZID [Suspect]
     Active Substance: PIMAVANSERIN TARTRATE
     Indication: PARKINSON^S DISEASE
     Dosage: 34 MILLIGRAM, QD
     Route: 048
     Dates: start: 20210420
  3. ROPINIROLE. [Concomitant]
     Active Substance: ROPINIROLE
  4. FOLIC ACID. [Concomitant]
     Active Substance: FOLIC ACID
  5. BUMETANIDE. [Concomitant]
     Active Substance: BUMETANIDE
  6. AMANTADINE. [Concomitant]
     Active Substance: AMANTADINE HYDROCHLORIDE
  7. VITAMIN D [VITAMIN D NOS] [Concomitant]
     Active Substance: VITAMIN D NOS
  8. ALBUTEROL SULFATE. [Concomitant]
     Active Substance: ALBUTEROL SULFATE
  9. MEMANTINE. [Concomitant]
     Active Substance: MEMANTINE
  10. ASPIRIN [ACETYLSALICYLIC ACID] [Concomitant]
     Active Substance: ASPIRIN
  11. MEGESTROL [Concomitant]
     Active Substance: MEGESTROL
  12. FUROSEMIDE. [Concomitant]
     Active Substance: FUROSEMIDE
  13. STIMULANT [Concomitant]
     Active Substance: UNSPECIFIED INGREDIENT
  14. CARBIDOPA/LEVODOPA [Concomitant]
     Active Substance: CARBIDOPA\LEVODOPA

REACTIONS (3)
  - Swelling [Not Recovered/Not Resolved]
  - Movement disorder [Not Recovered/Not Resolved]
  - Drug ineffective [Not Recovered/Not Resolved]
